FAERS Safety Report 12505712 (Version 1)
Quarter: 2016Q2

REPORT INFORMATION
  Report Type: Report from Study
  Country: CA (occurrence: CA)
  Receive Date: 20160628
  Receipt Date: 20160628
  Transmission Date: 20160815
  Serious: Yes (Other)
  Sender: FDA-Public Use
  Company Number: CA-JNJFOC-20160415166

PATIENT
  Age: 33 Year
  Sex: Female
  Weight: 126 kg

DRUGS (2)
  1. REMICADE [Suspect]
     Active Substance: INFLIXIMAB
     Indication: PSORIATIC ARTHROPATHY
     Route: 042
     Dates: start: 20160414
  2. REMICADE [Suspect]
     Active Substance: INFLIXIMAB
     Indication: RHEUMATOID ARTHRITIS
     Route: 042
     Dates: start: 20160414

REACTIONS (11)
  - Drug dependence [Unknown]
  - Off label use [Unknown]
  - Product use issue [Unknown]
  - Haematochezia [Unknown]
  - Eye disorder [Unknown]
  - Fatigue [Unknown]
  - Palpitations [Unknown]
  - Polyp [Unknown]
  - Groin abscess [Unknown]
  - Infusion related reaction [Unknown]
  - Discomfort [Unknown]

NARRATIVE: CASE EVENT DATE: 201604
